FAERS Safety Report 9858857 (Version 2)
Quarter: 2014Q1

REPORT INFORMATION
  Report Type: Spontaneous
  Country: US (occurrence: US)
  Receive Date: 20140131
  Receipt Date: 20140218
  Transmission Date: 20141002
  Serious: Yes (Other)
  Sender: FDA-Public Use
  Company Number: US-BAXTER-2014BAX003495

PATIENT
  Age: 35 Year
  Sex: Female

DRUGS (6)
  1. DIANEAL PD2 [Suspect]
     Indication: PERITONEAL DIALYSIS
     Route: 033
     Dates: end: 20140206
  2. DIANEAL PD2 [Suspect]
     Route: 033
     Dates: start: 20140213
  3. DIANEAL PD2 [Suspect]
     Indication: PERITONEAL DIALYSIS
     Route: 033
     Dates: start: 2010, end: 20140206
  4. DIANEAL PD2 [Suspect]
     Route: 033
     Dates: start: 20140213
  5. DIANEAL PD2 [Suspect]
     Indication: PERITONEAL DIALYSIS
     Route: 033
     Dates: end: 20140206
  6. DIANEAL PD2 [Suspect]
     Route: 033
     Dates: start: 20140213

REACTIONS (2)
  - Pneumoperitoneum [Unknown]
  - Abdominal pain [Recovering/Resolving]
